FAERS Safety Report 20729924 (Version 4)
Quarter: 2022Q3

REPORT INFORMATION
  Report Type: Spontaneous
  Country: JP (occurrence: JP)
  Receive Date: 20220420
  Receipt Date: 20220825
  Transmission Date: 20221027
  Serious: Yes (Death, Other)
  Sender: FDA-Public Use
  Company Number: JP-AMGEN-JPNSP2022066119

PATIENT
  Sex: Female

DRUGS (3)
  1. BLINCYTO [Suspect]
     Active Substance: BLINATUMOMAB
     Indication: Acute lymphocytic leukaemia
     Dosage: 9 MICROGRAM, QD
     Route: 042
     Dates: start: 20220411, end: 202204
  2. BLINCYTO [Suspect]
     Active Substance: BLINATUMOMAB
     Dosage: 9 MICROGRAM, QD
     Route: 042
     Dates: start: 20220418, end: 2022
  3. BLINCYTO [Suspect]
     Active Substance: BLINATUMOMAB
     Dosage: UNK
     Route: 042
     Dates: start: 20220418, end: 20220428

REACTIONS (14)
  - Disseminated intravascular coagulation [Recovered/Resolved]
  - Death [Fatal]
  - Tumour lysis syndrome [Recovering/Resolving]
  - Febrile neutropenia [Unknown]
  - Cytokine release syndrome [Unknown]
  - White blood cell count decreased [Unknown]
  - Neutrophil count decreased [Unknown]
  - Decreased appetite [Recovering/Resolving]
  - Malaise [Recovering/Resolving]
  - C-reactive protein increased [Not Recovered/Not Resolved]
  - Therapeutic product effect incomplete [Unknown]
  - Pyrexia [Recovered/Resolved]
  - Back pain [Recovering/Resolving]
  - Blood glucose increased [Unknown]

NARRATIVE: CASE EVENT DATE: 20220101
